FAERS Safety Report 8073848-2 (Version None)
Quarter: 2012Q1

REPORT INFORMATION
  Report Type: 
  Country: None (occurrence: None)
  Receive Date: 20120126
  Receipt Date: 20120113
  Transmission Date: 20120608
  Serious: Yes (Hospitalization)
  Sender: FDA-Public Use
  Company Number: DE-ROCHE-796861

PATIENT
  Sex: Male

DRUGS (23)
  1. TORSEMIDE [Suspect]
     Indication: PRODUCT USED FOR UNKNOWN INDICATION
     Route: 065
     Dates: start: 20100108, end: 20110509
  2. CLOPIDOGREL [Concomitant]
  3. EZETIMIBE [Concomitant]
     Dosage: 10/40MG DAILY
  4. PANTOPRAZOLE [Concomitant]
  5. ALISKIREN [Concomitant]
  6. NITROLINGUAL [Concomitant]
     Dosage: FREQUENCY: AS REQUIRED
  7. AMLODIPINE [Concomitant]
  8. ASPIRIN [Concomitant]
  9. OMEGA-3-ACID ETHYL ESTERS [Concomitant]
     Dates: start: 20110312, end: 20110509
  10. HYDROCHLOROTHIAZIDE [Concomitant]
  11. BLINDED ALEGLITAZAR [Suspect]
     Indication: CARDIOVASCULAR EVENT PROPHYLAXIS
     Dosage: LAST DOSE PRIOR TO HYPERKALAEMIA: 04/JUL/2011, HYPERTENSIVE CRISIS: 11/AUG/2011
     Route: 048
  12. NEBIVOLOL HCL [Concomitant]
  13. LIPROLOG [Concomitant]
  14. AMLODIPINE [Concomitant]
     Dates: start: 20100108, end: 20110315
  15. DIOVAN [Concomitant]
     Dates: start: 20110108, end: 20110317
  16. SPIRONOLACTONE [Suspect]
     Indication: PRODUCT USED FOR UNKNOWN INDICATION
  17. LEVEMIR [Concomitant]
     Dosage: REPORTED AS LEVEMIR INSULIN
  18. VILDAGLIPTIN [Concomitant]
  19. CATAPRES [Concomitant]
  20. ALLOPURINOL [Concomitant]
  21. METFORMIN HCL [Concomitant]
     Dates: start: 20100213, end: 20110311
  22. NITROLINGUAL [Concomitant]
     Dosage: 4 PUFF SINGLE DOSE
     Dates: start: 20111120, end: 20111120
  23. DIOVAN [Concomitant]

REACTIONS (3)
  - HYPERTENSIVE CRISIS [None]
  - CAROTID ARTERY STENOSIS [None]
  - HYPERKALAEMIA [None]
